FAERS Safety Report 20813616 (Version 1)
Quarter: 2022Q2

REPORT INFORMATION
  Report Type: Spontaneous
  Country: US (occurrence: None)
  Receive Date: 20220510
  Receipt Date: 20220510
  Transmission Date: 20220721
  Serious: No
  Sender: FDA-Public Use
  Company Number: None

PATIENT
  Sex: Female

DRUGS (2)
  1. ICATIBANT ACETATE [Suspect]
     Active Substance: ICATIBANT ACETATE
     Indication: Idiopathic urticaria
     Dosage: FREQUENCY : AS NEEDED;?
     Route: 058
     Dates: start: 202108
  2. TAKHZYRO [Suspect]
     Active Substance: LANADELUMAB-FLYO

REACTIONS (4)
  - Abdominal distension [None]
  - Injection site swelling [None]
  - Migraine [None]
  - Injection site erythema [None]
